FAERS Safety Report 16647247 (Version 1)
Quarter: 2019Q3

REPORT INFORMATION
  Report Type: Spontaneous
  Country: US (occurrence: US)
  Receive Date: 20190617
  Receipt Date: 20190617
  Transmission Date: 20191004
  Serious: No
  Sender: FDA-Public Use
  Company Number: None

PATIENT
  Sex: Female

DRUGS (2)
  1. ENOXAPARIN SOD SYRINGE [Suspect]
     Active Substance: ENOXAPARIN SODIUM
     Indication: PULMONARY EMBOLISM
     Dosage: ?          OTHER FREQUENCY:Q 12 H;?
     Route: 058
     Dates: start: 201512
  2. ENOXAPARIN SOD SYRINGE [Suspect]
     Active Substance: ENOXAPARIN SODIUM
     Indication: PROPHYLAXIS
     Dosage: ?          OTHER FREQUENCY:Q 12 H;?
     Route: 058
     Dates: start: 201512

REACTIONS (2)
  - Haemorrhage [None]
  - Contusion [None]
